FAERS Safety Report 8888552 (Version 3)
Quarter: 2013Q3

REPORT INFORMATION
  Report Type: Report from Study
  Country: AR (occurrence: AR)
  Receive Date: 20121106
  Receipt Date: 20130923
  Transmission Date: 20140515
  Serious: Yes (Other)
  Sender: FDA-Public Use
  Company Number: PHHY2012AR101403

PATIENT
  Age: 62 Year
  Sex: Male

DRUGS (2)
  1. DIOVAN [Suspect]
     Indication: BLOOD PRESSURE FLUCTUATION
     Dosage: 80 MG, DAILY
     Dates: start: 201106
  2. DIOVAN [Suspect]
     Indication: HYPERTENSION

REACTIONS (6)
  - Localised infection [Not Recovered/Not Resolved]
  - Pigmentation disorder [Not Recovered/Not Resolved]
  - Pain in extremity [Not Recovered/Not Resolved]
  - Erythema [Unknown]
  - Local swelling [Unknown]
  - Device dislocation [Unknown]
